FAERS Safety Report 12304878 (Version 1)
Quarter: 2016Q2

REPORT INFORMATION
  Report Type: Spontaneous
  Country: US (occurrence: None)
  Receive Date: 20160425
  Receipt Date: 20160425
  Transmission Date: 20160815
  Serious: Yes (Hospitalization)
  Sender: FDA-Public Use
  Company Number: None

PATIENT
  Age: 57 Year
  Sex: Male

DRUGS (1)
  1. VANCOMYCIN HCL 10GM POWDER VIAL PFIZER U.S. [Suspect]
     Active Substance: VANCOMYCIN HYDROCHLORIDE
     Indication: CELLULITIS
     Route: 042
     Dates: start: 20160323

REACTIONS (8)
  - Tinnitus [None]
  - Flank pain [None]
  - Blood creatinine increased [None]
  - Refusal of treatment by patient [None]
  - Depressed level of consciousness [None]
  - Drug level increased [None]
  - Deafness [None]
  - Back pain [None]

NARRATIVE: CASE EVENT DATE: 20160403
